FAERS Safety Report 6004750-5 (Version None)
Quarter: 2008Q4

REPORT INFORMATION
  Report Type: 
  Country: None (occurrence: None)
  Receive Date: 20081216
  Receipt Date: 20081211
  Transmission Date: 20090506
  Serious: Yes (Hospitalization)
  Sender: FDA-Public Use
  Company Number: US-B.I. PHARMACEUTICALS,INC./RIDGEFIELD-2008-BP-18517BP

PATIENT
  Sex: Female

DRUGS (4)
  1. SPIRIVA [Suspect]
     Indication: EMPHYSEMA
     Dosage: 18MCG
     Route: 055
     Dates: start: 20071201
  2. LIPITOR [Concomitant]
     Indication: BLOOD CHOLESTEROL INCREASED
     Route: 048
  3. WARFARIN SODIUM [Concomitant]
     Indication: ARRHYTHMIA
     Route: 048
     Dates: start: 20040101
  4. CARTIA XT [Concomitant]
     Indication: ARRHYTHMIA
     Route: 048
     Dates: start: 20040101

REACTIONS (1)
  - AORTIC ANEURYSM [None]
